FAERS Safety Report 8260976-1 (Version None)
Quarter: 2012Q2

REPORT INFORMATION
  Report Type: 
  Country: None (occurrence: None)
  Receive Date: 20120405
  Receipt Date: 20120330
  Transmission Date: 20120825
  Serious: No
  Sender: FDA-Public Use
  Company Number: US-PFIZER INC-2012064922

PATIENT
  Sex: Male

DRUGS (3)
  1. OMEPRAZOLE [Concomitant]
     Indication: REFLUX GASTRITIS
     Dosage: UNK
     Dates: start: 19980101
  2. VIAGRA [Suspect]
     Indication: ERECTILE DYSFUNCTION
     Dosage: 1 TABLET AS NEEDED
     Route: 048
     Dates: start: 20100101, end: 20100101
  3. ALLEGRA [Concomitant]
     Indication: HYPERSENSITIVITY
     Dosage: UNK
     Dates: start: 19980101

REACTIONS (1)
  - DRUG INEFFECTIVE [None]
